FAERS Safety Report 5535475-8 (Version None)
Quarter: 2007Q4

REPORT INFORMATION
  Report Type: 
  Country: None (occurrence: None)
  Receive Date: 20071206
  Receipt Date: 20071128
  Transmission Date: 20080405
  Serious: Yes (Hospitalization)
  Sender: FDA-Public Use
  Company Number: US-ROCHE-534009

PATIENT
  Age: 41 Year
  Sex: Male

DRUGS (1)
  1. VALCYTE [Suspect]
     Indication: DRUG USE FOR UNKNOWN INDICATION
     Route: 065
     Dates: start: 20071020, end: 20071022

REACTIONS (1)
  - CEREBROVASCULAR ACCIDENT [None]
